FAERS Safety Report 17487124 (Version 2)
Quarter: 2020Q1

REPORT INFORMATION
  Report Type: Spontaneous
  Country: CH (occurrence: CH)
  Receive Date: 20200303
  Receipt Date: 20200304
  Transmission Date: 20200409
  Serious: Yes (Hospitalization)
  Sender: FDA-Public Use
  Company Number: CH-MYLANLABS-2020M1021853

PATIENT
  Age: 51 Year
  Sex: Male
  Weight: 88 kg

DRUGS (23)
  1. COPAXONE [Suspect]
     Active Substance: GLATIRAMER ACETATE
     Indication: PRODUCT USED FOR UNKNOWN INDICATION
     Dosage: 20 MILLIGRAM, QD
     Route: 058
     Dates: start: 200306, end: 200407
  2. BETAFERON [Concomitant]
     Active Substance: INTERFERON BETA-1B
     Dosage: UNK
     Dates: start: 199509, end: 200108
  3. TIMONIL [Suspect]
     Active Substance: CARBAMAZEPINE
     Indication: PRODUCT USED FOR UNKNOWN INDICATION
     Dosage: 400 MILLIGRAM, QD
     Route: 048
     Dates: start: 201301
  4. CIPRALEX [Concomitant]
     Active Substance: ESCITALOPRAM OXALATE
     Dosage: 10 MILLIGRAM, QD
     Route: 048
     Dates: start: 2004
  5. NOVANTRONE [Suspect]
     Active Substance: MITOXANTRONE HYDROCHLORIDE
     Indication: PRODUCT USED FOR UNKNOWN INDICATION
     Dosage: 207 MILLIGRAM, TOTAL
     Route: 042
     Dates: start: 20011210, end: 20021111
  6. ELTROXIN [Concomitant]
     Active Substance: LEVOTHYROXINE
     Dosage: 150 MICROGRAM, QD
     Route: 048
     Dates: start: 2007
  7. GILENYA [Suspect]
     Active Substance: FINGOLIMOD HYDROCHLORIDE
     Indication: PRODUCT USED FOR UNKNOWN INDICATION
     Dosage: 0.5 MILLIGRAM, QD
     Route: 048
     Dates: start: 20130213
  8. ACIMETHIN [Concomitant]
     Dosage: 1500 MILLIGRAM, QD
     Route: 048
  9. PERINDOPRIL [Concomitant]
     Active Substance: PERINDOPRIL
     Dosage: 5 MILLIGRAM, QD
     Route: 048
  10. NOVORAPID [Concomitant]
     Active Substance: INSULIN ASPART
     Dosage: UNK UNK, PRN (AS NECESSARY)
     Route: 058
     Dates: start: 2019
  11. NOVANTRONE [Suspect]
     Active Substance: MITOXANTRONE HYDROCHLORIDE
     Dosage: 207 MILLIGRAM, TOTAL
     Route: 042
     Dates: start: 20040705, end: 200412
  12. PREGABALINUM [Concomitant]
     Dosage: 100 MILLIGRAM, QD
     Route: 048
     Dates: start: 200705
  13. TYSABRI [Suspect]
     Active Substance: NATALIZUMAB
     Indication: PRODUCT USED FOR UNKNOWN INDICATION
     Dosage: 300 MILLIGRAM, MONTHLY
     Dates: start: 200901, end: 201111
  14. TOVIAZ [Concomitant]
     Active Substance: FESOTERODINE FUMARATE
     Dosage: 8 MILLIGRAM, QD
     Route: 048
     Dates: start: 201009
  15. CETALLERG [Concomitant]
     Active Substance: CETIRIZINE HYDROCHLORIDE
     Dosage: 10 MILLIGRAM, QD
     Route: 048
     Dates: start: 201912
  16. TIMONIL [Suspect]
     Active Substance: CARBAMAZEPINE
     Dosage: 200 MILLIGRAM, QD
     Route: 048
     Dates: start: 201301
  17. REBIF [Concomitant]
     Active Substance: INTERFERON BETA-1A
     Dosage: 44 MICROGRAM, QOD, THREE TIMES PER WEEK
     Route: 058
     Dates: start: 20050331, end: 200901
  18. DITROPAN [Concomitant]
     Active Substance: OXYBUTYNIN CHLORIDE
     Dosage: 10 MILLIGRAM, QD
     Route: 048
     Dates: start: 201502
  19. LIORESAL [Concomitant]
     Active Substance: BACLOFEN
     Dosage: 25 MG/DAYUNK
     Route: 048
     Dates: start: 2010
  20. TRILEPTAL [Concomitant]
     Active Substance: OXCARBAZEPINE
     Dosage: 900 MILLIGRAM, QD
     Dates: start: 200610, end: 200705
  21. METFORMIN AXAPHARM [Concomitant]
     Dosage: 1500 MILLIGRAM, QD
     Route: 048
     Dates: start: 2012
  22. LIORESAL [Concomitant]
     Active Substance: BACLOFEN
     Dosage: UNK
     Route: 037
     Dates: start: 20151014
  23. LANTUS [Concomitant]
     Active Substance: INSULIN GLARGINE
     Dosage: 22 INTERNATIONAL UNIT, QD
     Route: 058
     Dates: start: 2019

REACTIONS (1)
  - Cutaneous T-cell lymphoma [Not Recovered/Not Resolved]

NARRATIVE: CASE EVENT DATE: 20191231
